FAERS Safety Report 19455723 (Version 1)
Quarter: 2021Q2

REPORT INFORMATION
  Report Type: Spontaneous
  Country: US (occurrence: US)
  Receive Date: 20210624
  Receipt Date: 20210624
  Transmission Date: 20210717
  Serious: No
  Sender: FDA-Public Use
  Company Number: US-BRACCO-2021US01071

PATIENT
  Sex: Female

DRUGS (2)
  1. PROHANCE [Suspect]
     Active Substance: GADOTERIDOL
     Indication: MAGNETIC RESONANCE IMAGING
     Dosage: UNK
  2. PROHANCE [Suspect]
     Active Substance: GADOTERIDOL
     Indication: ANGIOGRAM

REACTIONS (2)
  - Off label use [Unknown]
  - Nausea [Unknown]
